FAERS Safety Report 25249654 (Version 1)
Quarter: 2025Q2

REPORT INFORMATION
  Report Type: Spontaneous
  Country: US (occurrence: US)
  Receive Date: 20250429
  Receipt Date: 20250429
  Transmission Date: 20250717
  Serious: Yes (Hospitalization)
  Sender: MACLEODS
  Company Number: US-MACLEODS PHARMA-MAC2025052776

PATIENT

DRUGS (1)
  1. HYDRALAZINE [Suspect]
     Active Substance: HYDRALAZINE HYDROCHLORIDE
     Indication: Product used for unknown indication
     Dosage: THREE TIMES A DAY FOR THE PAST 20 YEARS
     Route: 065

REACTIONS (6)
  - Acute kidney injury [Unknown]
  - Bicytopenia [Unknown]
  - Lupus-like syndrome [Unknown]
  - Anti-neutrophil cytoplasmic antibody positive vasculitis [Unknown]
  - Glomerulonephritis rapidly progressive [Unknown]
  - Glomerulonephritis [Unknown]
